FAERS Safety Report 14948719 (Version 1)
Quarter: 2018Q2

REPORT INFORMATION
  Report Type: Report from Study
  Country: US (occurrence: US)
  Receive Date: 20180529
  Receipt Date: 20180529
  Transmission Date: 20180711
  Serious: Yes (Death)
  Sender: FDA-Public Use
  Company Number: US-PFIZER INC-2018213469

PATIENT

DRUGS (2)
  1. GEMCITABINE HYDROCHLORIDE. [Suspect]
     Active Substance: GEMCITABINE HYDROCHLORIDE
     Indication: NEOPLASM
     Dosage: 1000 MG/M2, CYCLIC (ON DAYS 1, 8, AND 15 OF 28 DAY CYCLES)
  2. PEVONEDISTAT [Suspect]
     Active Substance: PEVONEDISTAT
     Indication: NEOPLASM
     Dosage: 25 MG/M2, WEEKLY ON DAYS 1, 8, AND 15 OF 28- DAY CYCLES

REACTIONS (1)
  - Febrile neutropenia [Fatal]
